FAERS Safety Report 10049554 (Version 1)
Quarter: 2014Q1

REPORT INFORMATION
  Report Type: Spontaneous
  Country: US (occurrence: None)
  Receive Date: 20140331
  Receipt Date: 20140331
  Transmission Date: 20141002
  Serious: Yes (Other)
  Sender: FDA-Public Use
  Company Number: None

PATIENT
  Age: 53 Year
  Sex: Female
  Weight: 81.19 kg

DRUGS (6)
  1. LEVOTHYROXINE [Suspect]
     Indication: HYPERTHYROIDISM
  2. RISINPRILS [Concomitant]
  3. ALBUTONE [Concomitant]
  4. FLONASE [Concomitant]
  5. REMIBIDINE [Concomitant]
  6. DIPHENHYDRAMINE [Concomitant]

REACTIONS (2)
  - Panic attack [None]
  - Product substitution issue [None]
